FAERS Safety Report 7207396-6 (Version None)
Quarter: 2010Q4

REPORT INFORMATION
  Report Type: 
  Country: None (occurrence: None)
  Receive Date: 20101221
  Receipt Date: 20101203
  Transmission Date: 20110411
  Serious: Yes (Hospitalization)
  Sender: FDA-Public Use
  Company Number: 2135225-2010-00095

PATIENT
  Age: 68 Year
  Sex: Female

DRUGS (1)
  1. AETHOXYSKLEROL (POLIDOCANOL) [Suspect]
     Indication: SCLEROTHERAPY
     Dates: start: 20080101, end: 20090101

REACTIONS (5)
  - HEPATIC CYST [None]
  - RENAL CYST [None]
  - SCAR [None]
  - SKIN EROSION [None]
  - SKIN NODULE [None]
